FAERS Safety Report 8990328 (Version 1)
Quarter: 2012Q4

REPORT INFORMATION
  Report Type: Report from Study
  Country: US (occurrence: US)
  Receive Date: 20121228
  Receipt Date: 20121228
  Transmission Date: 20130627
  Serious: Yes (Other)
  Sender: FDA-Public Use
  Company Number: US-ABBOTT-12P-163-1024849-00

PATIENT
  Age: 56 None
  Sex: Female

DRUGS (10)
  1. HUMIRA [Suspect]
     Indication: PSORIATIC ARTHROPATHY
     Dates: start: 200709
  2. METHOTREXATE [Concomitant]
     Indication: PSORIATIC ARTHROPATHY
     Dosage: 3 Tablets weekly
  3. HYDROXYCHLOROQUINE [Concomitant]
     Indication: PSORIATIC ARTHROPATHY
     Dosage: 2 Tablets daily
  4. FOLIC ACID [Concomitant]
     Indication: VITAMIN SUPPLEMENTATION
     Dosage: 1 mg every day
  5. LEVOTHYROXINE [Concomitant]
     Indication: HYPOTHYROIDISM
     Dosage: 125 mcg daily
  6. ZYRTEC [Concomitant]
     Indication: HYPERSENSITIVITY
     Dosage: 10 mg every day
  7. ZYRTEC [Concomitant]
     Indication: DIZZINESS
  8. CENTRUM [Concomitant]
     Indication: PRODUCT USED FOR UNKNOWN INDICATION
     Dosage: Daily Vitamin
  9. CALCIUM [Concomitant]
     Indication: PRODUCT USED FOR UNKNOWN INDICATION
     Dosage: Daily Vitamin
  10. VITAMIN D [Concomitant]
     Indication: PRODUCT USED FOR UNKNOWN INDICATION
     Dosage: Daily Vitamin

REACTIONS (9)
  - Urinary incontinence [Recovered/Resolved]
  - Vertigo [Not Recovered/Not Resolved]
  - Trigger finger [Recovered/Resolved]
  - Throat irritation [Unknown]
  - Headache [Unknown]
  - Pyrexia [Unknown]
  - Productive cough [Unknown]
  - Benign neoplasm [Not Recovered/Not Resolved]
  - Viral infection [Unknown]
